FAERS Safety Report 22538847 (Version 2)
Quarter: 2024Q2

REPORT INFORMATION
  Report Type: Report from Study
  Country: US (occurrence: US)
  Receive Date: 20230609
  Receipt Date: 20240613
  Transmission Date: 20240716
  Serious: Yes (Other)
  Sender: FDA-Public Use
  Company Number: US-ABBVIE-5283041

PATIENT
  Sex: Male

DRUGS (1)
  1. SKYRIZI [Suspect]
     Active Substance: RISANKIZUMAB-RZAA
     Indication: Crohn^s disease
     Route: 058
     Dates: start: 20230301

REACTIONS (5)
  - Cerebrovascular accident [Recovering/Resolving]
  - Hyperhidrosis [Unknown]
  - Limb injury [Unknown]
  - Cognitive disorder [Unknown]
  - Stress [Unknown]

NARRATIVE: CASE EVENT DATE: 20230101
